FAERS Safety Report 25819837 (Version 1)
Quarter: 2025Q3

REPORT INFORMATION
  Report Type: Spontaneous
  Country: EU (occurrence: EU)
  Receive Date: 20250918
  Receipt Date: 20250918
  Transmission Date: 20251020
  Serious: Yes (Hospitalization, Other)
  Sender: MERCK SHARP & DOHME LLC
  Company Number: EU-009507513-2329625

PATIENT
  Age: 77 Year
  Sex: Male

DRUGS (7)
  1. PEMBROLIZUMAB [Suspect]
     Active Substance: PEMBROLIZUMAB
     Indication: Thyroid cancer
     Dosage: IN COMBINATION WITH DOXORUBICIN
     Dates: start: 202204, end: 202207
  2. PEMBROLIZUMAB [Suspect]
     Active Substance: PEMBROLIZUMAB
     Indication: Thyroid cancer
     Dosage: MONOTHERAPY
     Dates: start: 202207, end: 202301
  3. PEMBROLIZUMAB [Suspect]
     Active Substance: PEMBROLIZUMAB
     Indication: Thyroid cancer
     Dosage: COMBINATION WITH IPILIMUMAB
     Dates: start: 202310, end: 202311
  4. PEMBROLIZUMAB [Suspect]
     Active Substance: PEMBROLIZUMAB
     Indication: Thyroid cancer
     Dosage: MONOTHERAPY
  5. PEMBROLIZUMAB [Suspect]
     Active Substance: PEMBROLIZUMAB
     Indication: Thyroid cancer
     Dosage: IN COMBINATION WITH PACLITAXEL AND CARBOPLATIN
     Dates: start: 202202, end: 202204
  6. PACLITAXEL [Concomitant]
     Active Substance: PACLITAXEL
     Indication: Thyroid cancer
  7. CARBOPLATIN [Concomitant]
     Active Substance: CARBOPLATIN

REACTIONS (4)
  - Immune-mediated gastrointestinal disorder [Recovered/Resolved]
  - Immune-mediated hypophysitis [Unknown]
  - Product use in unapproved indication [Unknown]
  - Haematotoxicity [Unknown]

NARRATIVE: CASE EVENT DATE: 20220101
